FAERS Safety Report 7000175-4 (Version None)
Quarter: 2010Q3

REPORT INFORMATION
  Report Type: 
  Country: None (occurrence: None)
  Receive Date: 20100920
  Receipt Date: 20100628
  Transmission Date: 20110219
  Serious: No
  Sender: FDA-Public Use
  Company Number: US-ASTRAZENECA-2010SE30141

PATIENT
  Age: 13447 Day
  Sex: Female
  Weight: 65.8 kg

DRUGS (9)
  1. SEROQUEL [Suspect]
     Indication: BIPOLAR II DISORDER
     Route: 048
     Dates: end: 20100614
  2. SEROQUEL [Suspect]
     Route: 048
     Dates: start: 20100614
  3. VYVANSE [Concomitant]
     Indication: ATTENTION DEFICIT/HYPERACTIVITY DISORDER
  4. LEVOTHYROXINE [Concomitant]
     Indication: BASEDOW'S DISEASE
  5. ZOLOFT [Concomitant]
     Indication: DEPRESSION
  6. LAMICTAL [Concomitant]
     Indication: DEPRESSION
  7. ABILIFY [Concomitant]
     Indication: DEPRESSION
  8. VITAMINS [Concomitant]
  9. DHA FISH OIL [Concomitant]

REACTIONS (3)
  - DRUG DOSE OMISSION [None]
  - DRUG EXPOSURE DURING PREGNANCY [None]
  - INSOMNIA [None]
